FAERS Safety Report 5199244-3 (Version None)
Quarter: 2007Q1

REPORT INFORMATION
  Report Type: 
  Country: None (occurrence: None)
  Receive Date: 20070104
  Receipt Date: 20061227
  Transmission Date: 20070707
  Serious: Yes (Disabling, Other)
  Sender: FDA-Public Use
  Company Number: US-PFIZER INC-2006156026

PATIENT
  Age: 73 Year
  Sex: Female
  Weight: 104.3 kg

DRUGS (16)
  1. TIKOSYN [Suspect]
     Indication: ATRIAL FIBRILLATION
     Route: 048
  2. TIKOSYN [Suspect]
     Route: 048
  3. TIKOSYN [Suspect]
     Dosage: DAILY DOSE:750MCG
     Route: 048
  4. KLOR-CON [Concomitant]
  5. TOPROL-XL [Concomitant]
  6. FOLIC ACID [Concomitant]
  7. ALTACE [Concomitant]
  8. ZETIA [Concomitant]
  9. FISH OIL [Concomitant]
  10. FLAXSEED OIL [Concomitant]
  11. CALCIUM PLUS [Concomitant]
  12. SELENIUM SULFIDE [Concomitant]
  13. OSTEO BI-FLEX [Concomitant]
  14. VITAMIN CAP [Concomitant]
  15. DICLOFENAC SODIUM [Concomitant]
  16. DYAZIDE [Concomitant]

REACTIONS (5)
  - ATRIAL FIBRILLATION [None]
  - BLOOD MAGNESIUM DECREASED [None]
  - BLOOD POTASSIUM DECREASED [None]
  - INSOMNIA [None]
  - MYALGIA [None]
